FAERS Safety Report 11890050 (Version 1)
Quarter: 2016Q1

REPORT INFORMATION
  Report Type: Spontaneous
  Country: US (occurrence: US)
  Receive Date: 20160105
  Receipt Date: 20160105
  Transmission Date: 20160526
  Serious: No
  Sender: FDA-Public Use
  Company Number: US-PFIZER INC-2015477189

PATIENT
  Age: 60 Year
  Sex: Female
  Weight: 55.33 kg

DRUGS (13)
  1. XELJANZ [Suspect]
     Active Substance: TOFACITINIB CITRATE
     Indication: RHEUMATOID ARTHRITIS
     Dosage: 5 MG, 2X/DAY
     Route: 048
     Dates: start: 201503, end: 20151214
  2. ESTRADIOL. [Concomitant]
     Active Substance: ESTRADIOL
  3. COENZYME Q10 [Concomitant]
     Active Substance: UBIDECARENONE
  4. RESVERATROL [Concomitant]
     Active Substance: RESVERATROL
  5. METFORMIN [Concomitant]
     Active Substance: METFORMIN HYDROCHLORIDE
  6. FISH OIL [Concomitant]
     Active Substance: FISH OIL
  7. VITAMIN D [Concomitant]
     Active Substance: CHOLECALCIFEROL
  8. FOLIC ACID. [Concomitant]
     Active Substance: FOLIC ACID
  9. PREDNISONE. [Concomitant]
     Active Substance: PREDNISONE
  10. METHOTREXATE [Concomitant]
     Active Substance: METHOTREXATE
  11. ARAVA [Concomitant]
     Active Substance: LEFLUNOMIDE
  12. MAGNESIUM [Concomitant]
     Active Substance: MAGNESIUM
  13. VAGIFEM [Concomitant]
     Active Substance: ESTRADIOL

REACTIONS (1)
  - Diarrhoea [Unknown]

NARRATIVE: CASE EVENT DATE: 201510
